FAERS Safety Report 25847740 (Version 1)
Quarter: 2025Q3

REPORT INFORMATION
  Report Type: Spontaneous
  Country: US (occurrence: None)
  Receive Date: 20250924
  Receipt Date: 20250924
  Transmission Date: 20251020
  Serious: Yes (Disabling)
  Sender: FDA-CTU
  Company Number: None

PATIENT
  Age: 70 Year
  Sex: Male

DRUGS (1)
  1. LEVAQUIN [Suspect]
     Active Substance: LEVOFLOXACIN
     Indication: Prophylaxis
     Dates: start: 20210308, end: 20210315

REACTIONS (3)
  - Gait disturbance [None]
  - Peripheral motor neuropathy [None]
  - Tendon discomfort [None]

NARRATIVE: CASE EVENT DATE: 20210309
